FAERS Safety Report 23686266 (Version 8)
Quarter: 2025Q2

REPORT INFORMATION
  Report Type: Spontaneous
  Country: US (occurrence: US)
  Receive Date: 20240329
  Receipt Date: 20250521
  Transmission Date: 20250716
  Serious: No
  Sender: BRISTOL-MYERS SQUIBB COMPANY
  Company Number: US-BRISTOL-MYERS SQUIBB COMPANY-2024-050151

PATIENT
  Age: 57 Year
  Sex: Male

DRUGS (1)
  1. REVLIMID [Suspect]
     Active Substance: LENALIDOMIDE
     Indication: Plasma cell myeloma refractory
     Route: 048

REACTIONS (9)
  - Arthralgia [Unknown]
  - Headache [Recovering/Resolving]
  - Dysphonia [Unknown]
  - Pain [Unknown]
  - Tremor [Unknown]
  - Blepharospasm [Unknown]
  - Muscle spasms [Unknown]
  - Weight increased [Unknown]
  - Fatigue [Unknown]
